FAERS Safety Report 8198817-3 (Version None)
Quarter: 2012Q1

REPORT INFORMATION
  Report Type: 
  Country: None (occurrence: None)
  Receive Date: 20120309
  Receipt Date: 20120214
  Transmission Date: 20120608
  Serious: No
  Sender: FDA-Public Use
  Company Number: US-AMGEN-USASP2011068889

PATIENT
  Age: 70 Year
  Sex: Female

DRUGS (7)
  1. METOPROLOL SUCCINATE [Concomitant]
  2. HEMOCYTE PLUS [Concomitant]
  3. PROLIA [Suspect]
     Indication: OSTEOPOROSIS POSTMENOPAUSAL
     Dosage: 60 MG, Q6MO
     Dates: start: 20111213
  4. CALCIUM [Concomitant]
  5. HYDROCODONE BITARTRATE AND ACETAMINOPHEN [Concomitant]
  6. CENTRUM SILVER                     /01292501/ [Concomitant]
  7. LISINOPRIL AND HYDROCHLOROTHIAZIDE [Concomitant]

REACTIONS (1)
  - DYSPNOEA [None]
